FAERS Safety Report 20887071 (Version 1)
Quarter: 2022Q2

REPORT INFORMATION
  Report Type: Spontaneous
  Country: US (occurrence: US)
  Receive Date: 20220528
  Receipt Date: 20220528
  Transmission Date: 20220721
  Serious: No
  Sender: FDA-Public Use
  Company Number: US-Accord-227474

PATIENT
  Sex: Female
  Weight: 54.43 kg

DRUGS (3)
  1. METHOTREXATE [Suspect]
     Active Substance: METHOTREXATE
     Indication: Rheumatoid arthritis
     Dosage: ONCE A WEEK
     Route: 058
     Dates: end: 20210520
  2. LEUCOVORIN CALCIUM [Suspect]
     Active Substance: LEUCOVORIN CALCIUM
     Indication: Product used for unknown indication
  3. PROLIA [Concomitant]
     Active Substance: DENOSUMAB
     Dosage: EVERY 6 MONTHS

REACTIONS (4)
  - Alopecia [Unknown]
  - Oral pain [Recovering/Resolving]
  - Product dose omission issue [Unknown]
  - Product substitution issue [Unknown]
